FAERS Safety Report 7529084-9 (Version None)
Quarter: 2011Q2

REPORT INFORMATION
  Report Type: 
  Country: None (occurrence: None)
  Receive Date: 20110607
  Receipt Date: 20110602
  Transmission Date: 20111010
  Serious: Yes (Disabling, Other)
  Sender: FDA-Public Use
  Company Number: AU-ABBOTT-11P-008-0717827-00

PATIENT
  Sex: Female

DRUGS (3)
  1. ESOMEPRAZOLE MAGNESIUM [Suspect]
     Indication: HELICOBACTER INFECTION
     Dates: start: 20110326
  2. NEXIUM [Suspect]
     Indication: HELICOBACTER INFECTION
     Dates: start: 20110326
  3. AMOXICILLIN [Suspect]
     Indication: HELICOBACTER INFECTION
     Dates: start: 20110326

REACTIONS (2)
  - NO THERAPEUTIC RESPONSE [None]
  - HELICOBACTER TEST POSITIVE [None]
